FAERS Safety Report 19439937 (Version 2)
Quarter: 2021Q4

REPORT INFORMATION
  Report Type: Spontaneous
  Country: US (occurrence: US)
  Receive Date: 20210620
  Receipt Date: 20211124
  Transmission Date: 20220303
  Serious: No
  Sender: FDA-Public Use
  Company Number: US-JNJFOC-20210634505

PATIENT
  Age: 53 Year
  Sex: Male
  Weight: 199.76 kg

DRUGS (3)
  1. PREZCOBIX [Suspect]
     Active Substance: COBICISTAT\DARUNAVIR ETHANOLATE
     Indication: HIV infection
     Dosage: 800/150 MG
     Route: 048
     Dates: start: 20201119, end: 20210703
  2. BIKTARVY [Concomitant]
     Active Substance: BICTEGRAVIR SODIUM\EMTRICITABINE\TENOFOVIR ALAFENAMIDE FUMARATE
     Indication: HIV infection
  3. ATOVAQUONE [Concomitant]
     Active Substance: ATOVAQUONE
     Indication: Prophylaxis
     Dates: start: 20200912

REACTIONS (5)
  - Blister [Recovered/Resolved]
  - Oedema peripheral [Recovered/Resolved]
  - Fatigue [Unknown]
  - Hypersomnia [Unknown]
  - Weight increased [Unknown]

NARRATIVE: CASE EVENT DATE: 20210310
